FAERS Safety Report 21815434 (Version 1)
Quarter: 2022Q4

REPORT INFORMATION
  Report Type: Spontaneous
  Country: US (occurrence: None)
  Receive Date: 20221230
  Receipt Date: 20221230
  Transmission Date: 20230113
  Serious: Yes (Other)
  Sender: FDA-Public Use
  Company Number: None

PATIENT
  Sex: Male

DRUGS (5)
  1. LENALIDOMIDE [Suspect]
     Active Substance: LENALIDOMIDE
     Indication: Plasma cell myeloma
     Dosage: 10 MG ORAL??TAKE 1 CAPSULE BY MOUTH EVERY DAY FOR 21 DAYS ON, 7 DAYS OFF
     Route: 048
     Dates: start: 20220622
  2. BRIMONIDINE SOL OP [Concomitant]
  3. FUROSEMIDE TAB [Concomitant]
  4. TIMOLOL MAL SOL [Concomitant]
  5. ZOLEDRONIC ACID [Suspect]
     Active Substance: ZOLEDRONIC ACID

REACTIONS (3)
  - Pelvic fracture [None]
  - Upper limb fracture [None]
  - Therapy interrupted [None]
